FAERS Safety Report 17613348 (Version 2)
Quarter: 2020Q2

REPORT INFORMATION
  Report Type: Spontaneous
  Country: US (occurrence: US)
  Receive Date: 20200401
  Receipt Date: 20200401
  Transmission Date: 20200713
  Serious: No
  Sender: FDA-Public Use
  Company Number: US-GALDERMA-US19071536

PATIENT
  Age: 33 Year
  Sex: Female

DRUGS (4)
  1. PROACTIV MD DEEP CLEANSING FACE WASH [Concomitant]
     Active Substance: COSMETICS
     Indication: ERYTHEMA
     Route: 061
     Dates: start: 20190222, end: 20191031
  2. PROACTIV GREEN TEA MOISTURIZER [Concomitant]
     Active Substance: COSMETICS
     Indication: ERYTHEMA
     Route: 061
     Dates: start: 20190222, end: 20191031
  3. PROACTIV MD ADAPALENE ACNE TREATMENT [Suspect]
     Active Substance: ADAPALENE
     Indication: ERYTHEMA
     Dosage: 0.1%
     Route: 061
     Dates: start: 20190222, end: 20191031
  4. PROACTIV MD DAILY OIL CONTROL SPF 30 [Suspect]
     Active Substance: AVOBENZONE\OCTISALATE\OCTOCRYLENE
     Indication: ERYTHEMA
     Route: 061
     Dates: start: 20190222, end: 20191031

REACTIONS (11)
  - Skin burning sensation [Recovering/Resolving]
  - Drug ineffective for unapproved indication [Recovered/Resolved]
  - Inappropriate schedule of product administration [Recovered/Resolved]
  - Underdose [Recovered/Resolved]
  - Erythema [Recovering/Resolving]
  - Condition aggravated [Recovering/Resolving]
  - Skin irritation [Recovering/Resolving]
  - Product use in unapproved indication [Recovered/Resolved]
  - Dry skin [Recovering/Resolving]
  - Sensitive skin [Recovering/Resolving]
  - Rash [Recovering/Resolving]

NARRATIVE: CASE EVENT DATE: 20190222
